FAERS Safety Report 17247033 (Version 1)
Quarter: 2020Q1

REPORT INFORMATION
  Report Type: Spontaneous
  Country: DE (occurrence: DE)
  Receive Date: 20200108
  Receipt Date: 20200108
  Transmission Date: 20200409
  Serious: Yes (Other)
  Sender: FDA-Public Use
  Company Number: DE-ASTRAZENECA-2020SE02105

PATIENT
  Sex: Female
  Weight: 85 kg

DRUGS (5)
  1. MAXIM [Concomitant]
     Indication: CONTRACEPTION
     Dosage: UNK (PILLS)
     Route: 048
     Dates: start: 20150418
  2. AMIADA [Concomitant]
     Indication: PRODUCT USED FOR UNKNOWN INDICATION
     Dosage: UNK
     Route: 065
     Dates: start: 201701
  3. EBASTIN [Concomitant]
     Active Substance: EBASTINE
     Indication: PRODUCT USED FOR UNKNOWN INDICATION
     Dosage: 64 DF64.0DF UNKNOWN
     Route: 065
     Dates: start: 201801
  4. MAXIM [Concomitant]
     Indication: CONTRACEPTION
     Dosage: UNK
     Route: 048
     Dates: start: 201901, end: 20191113
  5. BUDESONIDE. [Suspect]
     Active Substance: BUDESONIDE
     Indication: PRODUCT USED FOR UNKNOWN INDICATION
     Dosage: UNK
     Route: 055
     Dates: start: 201801

REACTIONS (3)
  - Peripheral swelling [Unknown]
  - Feeling hot [Unknown]
  - Venous thrombosis [Unknown]

NARRATIVE: CASE EVENT DATE: 20191007
